FAERS Safety Report 9582025 (Version 1)
Quarter: 2013Q4

REPORT INFORMATION
  Report Type: Spontaneous
  Country: US (occurrence: US)
  Receive Date: 20131002
  Receipt Date: 20131002
  Transmission Date: 20140711
  Serious: No
  Sender: FDA-Public Use
  Company Number: US-AMGEN-USASP2013000034

PATIENT
  Sex: Male

DRUGS (8)
  1. ENBREL [Suspect]
     Indication: RHEUMATOID ARTHRITIS
     Dosage: 50 MG, QWK
     Route: 058
  2. METHOTREXATE [Concomitant]
     Dosage: 50 MG/2ML
  3. CALCIUM [Concomitant]
     Dosage: UNK
  4. FOLIC ACID [Concomitant]
     Dosage: 20 MG, UNK
  5. REMERON [Concomitant]
     Dosage: 30 MG, UNK
  6. MULTIPLE VITAMINS [Concomitant]
     Dosage: UNK
  7. TYLENOL 8 HOUR [Concomitant]
     Dosage: 650 MG, UNK
  8. NEXIUM                             /01479302/ [Concomitant]
     Dosage: 40 MG, UNK

REACTIONS (3)
  - Back pain [Unknown]
  - Local swelling [Unknown]
  - Pyrexia [Recovered/Resolved]
